FAERS Safety Report 19367841 (Version 1)
Quarter: 2021Q2

REPORT INFORMATION
  Report Type: Spontaneous
  Country: DE (occurrence: DE)
  Receive Date: 20210602
  Receipt Date: 20210602
  Transmission Date: 20210717
  Serious: Yes (Other)
  Sender: FDA-Public Use
  Company Number: DE-FRESENIUS KABI-FK202105616

PATIENT
  Age: 60 Year
  Sex: Male

DRUGS (7)
  1. ACYCLOVIR SODIUM (MANUFACTURER UNKNOWN) [Suspect]
     Active Substance: ACYCLOVIR SODIUM
     Indication: MENINGOENCEPHALITIS HERPETIC
     Route: 051
  2. CEFTRIAXONE. [Concomitant]
     Active Substance: CEFTRIAXONE
     Indication: EVIDENCE BASED TREATMENT
     Route: 065
  3. MOXIFLOXACIN. [Concomitant]
     Active Substance: MOXIFLOXACIN
     Indication: EVIDENCE BASED TREATMENT
     Route: 065
  4. METHYLPREDNISOLONE (MANUFACTURER UNKNOWN) [Suspect]
     Active Substance: METHYLPREDNISOLONE
     Indication: IMMUNOSUPPRESSANT DRUG THERAPY
     Route: 065
  5. MYCOPHENOLIC ACID. [Suspect]
     Active Substance: MYCOPHENOLIC ACID
     Indication: IMMUNOSUPPRESSANT DRUG THERAPY
     Route: 065
  6. METHYLPREDNISOLONE (MANUFACTURER UNKNOWN) [Suspect]
     Active Substance: METHYLPREDNISOLONE
     Route: 065
  7. TACROLIMUS. [Suspect]
     Active Substance: TACROLIMUS
     Indication: IMMUNOSUPPRESSANT DRUG THERAPY
     Route: 065

REACTIONS (2)
  - West Nile viral infection [Recovered/Resolved]
  - Transplant failure [Recovered/Resolved]
